FAERS Safety Report 6217255-3 (Version None)
Quarter: 2009Q2

REPORT INFORMATION
  Report Type: 
  Country: None (occurrence: None)
  Receive Date: 20090608
  Receipt Date: 20090526
  Transmission Date: 20091009
  Serious: Yes (Life-Threatening, Hospitalization, Disabling)
  Sender: FDA-Public Use
  Company Number: FR-PFIZER INC-2009217834

PATIENT
  Age: 62 Year

DRUGS (5)
  1. TAHOR [Suspect]
     Indication: CEREBROVASCULAR ACCIDENT
     Dosage: UNK
     Route: 048
     Dates: start: 20050101, end: 20080929
  2. RAPTIVA [Suspect]
     Indication: PSORIASIS
     Dosage: 1 MG/KG, WEEKLY
     Route: 058
     Dates: start: 20070827, end: 20080929
  3. PLAVIX [Suspect]
     Indication: CEREBROVASCULAR ACCIDENT
     Dosage: 75 MG, 1X/DAY
     Route: 048
     Dates: start: 20050101, end: 20080929
  4. PERINDOPRIL ERBUMINE [Suspect]
     Indication: HYPERTENSION
     Dosage: 4 MILLIONIU, 1X/DAY
     Route: 048
     Dates: start: 19990101
  5. LIORESAL [Suspect]
     Indication: CEREBROVASCULAR ACCIDENT
     Dosage: 10 MG, 1X/DAY
     Route: 048
     Dates: start: 20050101

REACTIONS (1)
  - RECTAL CANCER [None]
